FAERS Safety Report 22284218 (Version 2)
Quarter: 2023Q2

REPORT INFORMATION
  Report Type: Spontaneous
  Country: CN (occurrence: CN)
  Receive Date: 20230504
  Receipt Date: 20230510
  Transmission Date: 20230722
  Serious: Yes (Life-Threatening, Hospitalization)
  Sender: FDA-Public Use
  Company Number: CN-PFIZER INC-PV202300077951

PATIENT
  Age: 30 Year
  Sex: Female
  Weight: 65 kg

DRUGS (1)
  1. METHOTREXATE SODIUM [Suspect]
     Active Substance: METHOTREXATE SODIUM
     Indication: Ectopic pregnancy
     Dosage: 70 MG, 1X/DAY
     Route: 030
     Dates: start: 20230413, end: 20230417

REACTIONS (10)
  - Pyrexia [Recovering/Resolving]
  - Rash [Recovering/Resolving]
  - Sepsis [Recovering/Resolving]
  - Agranulocytosis [Recovering/Resolving]
  - Pruritus [Recovering/Resolving]
  - Dizziness [Recovering/Resolving]
  - Asthenia [Recovering/Resolving]
  - Oropharyngeal pain [Recovering/Resolving]
  - Oropharyngeal discomfort [Recovering/Resolving]
  - Neutropenic infection [Recovering/Resolving]

NARRATIVE: CASE EVENT DATE: 20230417
